FAERS Safety Report 10634764 (Version 1)
Quarter: 2014Q4

REPORT INFORMATION
  Report Type: Spontaneous
  Country: FR (occurrence: FR)
  Receive Date: 20141205
  Receipt Date: 20141205
  Transmission Date: 20150529
  Serious: Yes (Death, Hospitalization, Other)
  Sender: FDA-Public Use
  Company Number: FR-009507513-1412FRA001849

PATIENT
  Age: 19 Year
  Sex: Male

DRUGS (5)
  1. MNESIS [Suspect]
     Active Substance: IDEBENONE
     Indication: FRIEDREICH^S ATAXIA
     Dosage: 45 MG, QD
     Route: 048
     Dates: start: 20070801
  2. GLUCOR [Suspect]
     Active Substance: ACARBOSE
     Indication: TYPE 2 DIABETES MELLITUS
     Dosage: 100 MG, TID
     Route: 048
     Dates: start: 20091201
  3. JANUVIA [Suspect]
     Active Substance: SITAGLIPTIN PHOSPHATE
     Indication: TYPE 2 DIABETES MELLITUS
     Dosage: 100 MG, QD
     Route: 048
     Dates: start: 20111201
  4. AVLOCARDYL [Suspect]
     Active Substance: PROPRANOLOL HYDROCHLORIDE
     Indication: PRODUCT USED FOR UNKNOWN INDICATION
     Dosage: 40 MG, BID
     Route: 048
     Dates: start: 20100901
  5. NOVO-NORM [Suspect]
     Active Substance: REPAGLINIDE
     Indication: PRODUCT USED FOR UNKNOWN INDICATION
     Dosage: 1 MG, TID
     Route: 048
     Dates: start: 20091201

REACTIONS (13)
  - Vomiting [None]
  - Shock [None]
  - Metabolic acidosis [Fatal]
  - Acute kidney injury [None]
  - Hyperammonaemia [None]
  - Hepatitis fulminant [Fatal]
  - Acute kidney injury [Fatal]
  - Hepatocellular injury [None]
  - Cardio-respiratory arrest [Fatal]
  - General physical condition abnormal [None]
  - Encephalopathy [None]
  - Asthenia [None]
  - Diarrhoea [None]

NARRATIVE: CASE EVENT DATE: 20141025
